FAERS Safety Report 15929781 (Version 8)
Quarter: 2021Q3

REPORT INFORMATION
  Report Type: Spontaneous
  Country: CA (occurrence: CA)
  Receive Date: 20190206
  Receipt Date: 20210815
  Transmission Date: 20211014
  Serious: Yes (Hospitalization, Other)
  Sender: FDA-Public Use
  Company Number: CA-ASCEND THERAPEUTICS-2062251

PATIENT
  Age: 52 Year
  Sex: Female

DRUGS (17)
  1. CRINONE [Suspect]
     Active Substance: PROGESTERONE
     Route: 065
  2. BUDESONIDE. [Concomitant]
     Active Substance: BUDESONIDE
     Route: 065
  3. CLARITIN ALLERGY + SINUS(PSEUDOEPHEDRINE SULFATE, LORATADINE) [Concomitant]
     Route: 048
  4. ESTROGEL [Suspect]
     Active Substance: ESTRADIOL
     Indication: PRODUCT USED FOR UNKNOWN INDICATION
     Route: 065
  5. CLARITIN [Suspect]
     Active Substance: LORATADINE
     Route: 048
  6. GLICLAZIDE [Concomitant]
     Active Substance: GLICLAZIDE
     Route: 065
  7. INTRAROSA [Suspect]
     Active Substance: PRASTERONE
     Route: 065
  8. ESTROGEL [Suspect]
     Active Substance: ESTRADIOL
  9. LORATADINE. [Concomitant]
     Active Substance: LORATADINE
     Route: 065
  10. ESTROGEL [Suspect]
     Active Substance: ESTRADIOL
     Route: 065
  11. CLARITIN [Concomitant]
     Active Substance: LORATADINE
     Route: 048
  12. PROGESTERONE. [Suspect]
     Active Substance: PROGESTERONE
     Route: 067
  13. THYROID [Suspect]
     Active Substance: LEVOTHYROXINE\LIOTHYRONINE
     Route: 065
  14. PRASTERONE (PRASTERONE)?INDICATED USE: MENOPAUSE [Suspect]
     Active Substance: PRASTERONE
     Route: 067
  15. PROMETRIUM [Suspect]
     Active Substance: PROGESTERONE
     Route: 065
  16. DEHYDROEPIANDROSTERONE (PRASTERONE)?PRODUCT USED FOR UNKNOWN INDICATIO [Suspect]
     Active Substance: PRASTERONE
     Route: 067
  17. BUDESONIDE. [Suspect]
     Active Substance: BUDESONIDE
     Route: 065

REACTIONS (12)
  - Butterfly rash [Unknown]
  - Feeling hot [Unknown]
  - Head discomfort [Unknown]
  - Rash [Unknown]
  - Headache [Unknown]
  - Cellulitis [Unknown]
  - Swelling face [Unknown]
  - Product use in unapproved indication [None]
  - Periorbital oedema [Unknown]
  - Tinnitus [Unknown]
  - Off label use [Unknown]
  - Photosensitivity reaction [Unknown]
